FAERS Safety Report 6165576-5 (Version None)
Quarter: 2009Q2

REPORT INFORMATION
  Report Type: 
  Country: None (occurrence: None)
  Receive Date: 20090423
  Receipt Date: 20090420
  Transmission Date: 20091009
  Serious: Yes (Hospitalization, Other)
  Sender: FDA-Public Use
  Company Number: US-JNJFOC-20090305269

PATIENT
  Sex: Female
  Weight: 90.72 kg

DRUGS (4)
  1. EXTRA STRENGTH TYLENOL [Suspect]
     Indication: TRIGGER FINGER
     Route: 048
  2. EXTRA STRENGTH TYLENOL [Suspect]
     Indication: ROTATOR CUFF SYNDROME
     Route: 048
  3. DIOVAN [Concomitant]
     Indication: HYPERTENSION
  4. REMIDEX [Concomitant]
     Route: 048

REACTIONS (4)
  - CEREBROVASCULAR ACCIDENT [None]
  - HEADACHE [None]
  - MENTAL IMPAIRMENT [None]
  - VISUAL IMPAIRMENT [None]
